FAERS Safety Report 6138761-6 (Version None)
Quarter: 2009Q1

REPORT INFORMATION
  Report Type: 
  Country: None (occurrence: None)
  Receive Date: 20090331
  Receipt Date: 20090107
  Transmission Date: 20090719
  Serious: No
  Sender: FDA-Public Use
  Company Number: US-TYCO HEALTHCARE/MALLINCKRODT-T200900030

PATIENT
  Sex: Female

DRUGS (1)
  1. TUSSICAPS EXTENDED-RELEASE [Suspect]
     Dosage: UNK

REACTIONS (2)
  - BURNING SENSATION [None]
  - PRURITUS [None]
